FAERS Safety Report 4324658-0 (Version None)
Quarter: 2004Q1

REPORT INFORMATION
  Report Type: 
  Country: None (occurrence: None)
  Receive Date: 20040322
  Receipt Date: 20040310
  Transmission Date: 20041129
  Serious: Yes (Other)
  Sender: FDA-Public Use
  Company Number: NSADSS2002025880

PATIENT
  Age: 81 Year
  Sex: Male

DRUGS (3)
  1. LEVOFLOXACIN [Suspect]
     Indication: PROSTATITIS
     Dosage: ORAL
     Route: 048
     Dates: start: 20010128, end: 20010130
  2. CORTISONE (CORTISONE) [Concomitant]
  3. MARCUMAR [Concomitant]

REACTIONS (8)
  - ABDOMINAL DISTENSION [None]
  - HAEMATOMA [None]
  - HYPOAESTHESIA [None]
  - MUSCLE ATROPHY [None]
  - NAUSEA [None]
  - RETCHING [None]
  - RHABDOMYOLYSIS [None]
  - TENDON RUPTURE [None]
